FAERS Safety Report 10237708 (Version 1)
Quarter: 2014Q2

REPORT INFORMATION
  Report Type: Spontaneous
  Country: GB (occurrence: GB)
  Receive Date: 20140616
  Receipt Date: 20140616
  Transmission Date: 20141212
  Serious: Yes (Other)
  Sender: FDA-Public Use
  Company Number: GB-ACCORD-024198

PATIENT
  Age: 47 Year
  Sex: Female
  Weight: 71 kg

DRUGS (5)
  1. METHOTREXATE [Suspect]
     Indication: PRODUCT USED FOR UNKNOWN INDICATION
     Route: 048
     Dates: start: 201202, end: 20140410
  2. FEXOFENADINE/FEXOFENADINE HYDROCHLORIDE [Concomitant]
     Indication: URTICARIA
     Route: 048
     Dates: start: 201307
  3. PREDNISOLONE [Concomitant]
     Indication: DERMATOMYOSITIS
     Dosage: ALTERNATE DAYS
     Route: 048
     Dates: start: 201211
  4. FOLIC ACID [Concomitant]
     Indication: DERMATOMYOSITIS
     Route: 048
     Dates: start: 201202
  5. HYDROXYCHLOROQUINE [Suspect]
     Indication: DERMATOMYOSITIS
     Dosage: INCREASED ON 24-JAN-2014
     Route: 048
     Dates: end: 20140410

REACTIONS (4)
  - Lymphopenia [Recovered/Resolved]
  - White blood cell count decreased [Recovered/Resolved]
  - Neutropenia [Recovered/Resolved]
  - Bone marrow failure [Recovered/Resolved]
